FAERS Safety Report 10871002 (Version 1)
Quarter: 2015Q1

REPORT INFORMATION
  Report Type: Report from Study
  Country: CO (occurrence: CO)
  Receive Date: 20150226
  Receipt Date: 20150226
  Transmission Date: 20150721
  Serious: Yes (Death, Hospitalization)
  Sender: FDA-Public Use
  Company Number: CO-ABBVIE-15K-036-1352041-00

PATIENT
  Age: 42 Year
  Sex: Male

DRUGS (1)
  1. ZEMPLAR [Suspect]
     Active Substance: PARICALCITOL
     Indication: HYPERPARATHYROIDISM SECONDARY
     Dosage: AFTER DIALYSIS
     Route: 042
     Dates: start: 20150108, end: 20150130

REACTIONS (3)
  - Cerebrovascular accident [Fatal]
  - Angiopathy [Unknown]
  - Syncope [Unknown]

NARRATIVE: CASE EVENT DATE: 20150130
